FAERS Safety Report 11703986 (Version 1)
Quarter: 2015Q4

REPORT INFORMATION
  Report Type: Spontaneous
  Country: US (occurrence: None)
  Receive Date: 20151105
  Receipt Date: 20151105
  Transmission Date: 20160304
  Serious: Yes (Other)
  Sender: FDA-Public Use
  Company Number: None

PATIENT
  Age: 45 Year
  Sex: Female

DRUGS (1)
  1. STELARA [Suspect]
     Active Substance: USTEKINUMAB
     Indication: PSORIATIC ARTHROPATHY
     Dosage: WEEKS 0 AND 4
     Route: 058
     Dates: start: 20151104, end: 20151104

REACTIONS (7)
  - Headache [None]
  - Nausea [None]
  - Dyspnoea [None]
  - Chest pain [None]
  - Hypersensitivity [None]
  - Dizziness [None]
  - Chest discomfort [None]

NARRATIVE: CASE EVENT DATE: 20151104
